FAERS Safety Report 7972140-1 (Version None)
Quarter: 2011Q4

REPORT INFORMATION
  Report Type: 
  Country: None (occurrence: None)
  Receive Date: 20111212
  Receipt Date: 20111128
  Transmission Date: 20120403
  Serious: Yes (Life-Threatening, Hospitalization)
  Sender: FDA-Public Use
  Company Number: JP-GLAXOSMITHKLINE-B0693336A

PATIENT
  Sex: Female

DRUGS (22)
  1. FUROSEMIDE [Concomitant]
     Route: 048
  2. GLAKAY [Concomitant]
     Indication: PROPHYLAXIS
     Route: 048
  3. LANSOPRAZOLE [Concomitant]
     Route: 048
  4. FLOLAN [Suspect]
     Dates: start: 20101130
  5. REVATIO [Suspect]
     Indication: PULMONARY HYPERTENSION
     Route: 048
  6. ASPARTIC ACID [Concomitant]
     Indication: PROPHYLAXIS
  7. LOXONIN [Concomitant]
     Route: 048
  8. URSO                               /00465701/ [Concomitant]
     Route: 048
  9. ALDACTONE [Concomitant]
     Indication: PROPHYLAXIS
     Route: 048
  10. MAGMITT [Concomitant]
     Route: 048
  11. AMBRISENTAN [Suspect]
     Indication: PULMONARY HYPERTENSION
     Dosage: UNK UNK, QD
     Route: 048
     Dates: start: 20101019, end: 20101224
  12. LANSOPRAZOLE [Concomitant]
     Route: 048
  13. FLOLAN [Suspect]
     Indication: PULMONARY ARTERIAL HYPERTENSION
     Route: 042
     Dates: end: 20101129
  14. PREDNISOLONE [Concomitant]
     Indication: SCLERODERMA
     Route: 048
  15. FUROSEMIDE [Concomitant]
     Route: 048
  16. GLAKAY [Concomitant]
     Route: 048
  17. ALDACTONE [Concomitant]
     Route: 048
  18. PREDNISOLONE [Concomitant]
     Route: 048
  19. MUCOSTA [Concomitant]
     Indication: PROPHYLAXIS
     Route: 048
  20. MUCOSTA [Concomitant]
     Route: 048
  21. MAGMITT [Concomitant]
     Route: 048
  22. LOXONIN [Concomitant]
     Route: 048

REACTIONS (3)
  - PULMONARY ALVEOLAR HAEMORRHAGE [None]
  - ANAEMIA [None]
  - CARDIAC FAILURE [None]
